FAERS Safety Report 7525351-3 (Version None)
Quarter: 2011Q2

REPORT INFORMATION
  Report Type: 
  Country: None (occurrence: None)
  Receive Date: 20110526
  Receipt Date: 20110513
  Transmission Date: 20111010
  Serious: Yes (Hospitalization)
  Sender: FDA-Public Use
  Company Number: 2011MA005896

PATIENT
  Age: 58 Year
  Sex: Female

DRUGS (9)
  1. CLONAZEPAM [Concomitant]
  2. ROSUVASTATIN [Concomitant]
  3. ACAMPROSATE [Concomitant]
  4. ATENOLOL [Concomitant]
  5. CITALOPRAM HYDROBROMIDE [Suspect]
     Dosage: 60 MG;QD
  6. MIRTAZAPINE [Concomitant]
  7. HYDROCHLOROTHIAZIDE [Concomitant]
  8. RANITIDINE [Concomitant]
  9. QUETIAPINE [Concomitant]

REACTIONS (13)
  - NAUSEA [None]
  - TORSADE DE POINTES [None]
  - HYPERHIDROSIS [None]
  - SYNCOPE [None]
  - TACHYCARDIA [None]
  - ASTHENIA [None]
  - ROAD TRAFFIC ACCIDENT [None]
  - DIZZINESS [None]
  - HYPOMAGNESAEMIA [None]
  - LOSS OF CONSCIOUSNESS [None]
  - MALAISE [None]
  - HYPOKALAEMIA [None]
  - ELECTROCARDIOGRAM QT PROLONGED [None]
